FAERS Safety Report 14195394 (Version 1)
Quarter: 2017Q4

REPORT INFORMATION
  Report Type: Spontaneous
  Country: FR (occurrence: FR)
  Receive Date: 20171116
  Receipt Date: 20171116
  Transmission Date: 20180321
  Serious: Yes (Other)
  Sender: FDA-Public Use
  Company Number: FR-PFIZER INC-2017485108

PATIENT
  Age: 65 Year
  Sex: Female

DRUGS (10)
  1. PRIMPERAN [Suspect]
     Active Substance: METOCLOPRAMIDE HYDROCHLORIDE
     Indication: PROPHYLAXIS OF NAUSEA AND VOMITING
     Dosage: UNK
     Route: 048
     Dates: start: 20170927
  2. ACTISKENAN [Suspect]
     Active Substance: MORPHINE SULFATE
     Indication: PAIN
     Dosage: 5 MG, EVERY 4 HOURS AS NEEDED
     Route: 048
     Dates: start: 20170927, end: 201710
  3. SKENAN [Suspect]
     Active Substance: MORPHINE SULFATE
     Indication: PAIN
     Dosage: 20 MG, 2X/DAY
     Route: 048
     Dates: start: 20170927, end: 201710
  4. VITAMIN B9 [Concomitant]
     Indication: PREMEDICATION
     Dosage: UNK
     Dates: start: 20170927
  5. CARBOPLATINE HOSPIRA [Suspect]
     Active Substance: CARBOPLATIN
     Indication: LUNG NEOPLASM MALIGNANT
     Dosage: 473 MG, SINGLE ADMINISTRATION
     Route: 042
     Dates: start: 20170927, end: 20170927
  6. ALIMTA [Suspect]
     Active Substance: PEMETREXED DISODIUM
     Indication: LUNG NEOPLASM MALIGNANT
     Dosage: 660 MG, SINGLE ADMINISTRATION
     Route: 042
     Dates: start: 20170927, end: 20170927
  7. SOLUPRED /00016217/ [Suspect]
     Active Substance: PREDNISOLONE
     Indication: PREMEDICATION
     Dosage: UNK
     Route: 048
     Dates: start: 20170927, end: 20170927
  8. EMEND [Suspect]
     Active Substance: APREPITANT
     Indication: PROPHYLAXIS OF NAUSEA AND VOMITING
     Dosage: 1 DF, 1X/DAY
     Route: 048
     Dates: start: 20170927, end: 20170928
  9. VITAMIN B12 [Concomitant]
     Active Substance: CYANOCOBALAMIN
     Indication: PREMEDICATION
     Dosage: UNK
     Dates: start: 20170927
  10. ZOPHREN /00955302/ [Suspect]
     Active Substance: ONDANSETRON
     Indication: PROPHYLAXIS OF NAUSEA AND VOMITING
     Dosage: 1 DF, 2X/DAY
     Route: 048
     Dates: start: 20170927, end: 20170929

REACTIONS (2)
  - Hepatocellular injury [Recovering/Resolving]
  - Hyponatraemia [Recovering/Resolving]

NARRATIVE: CASE EVENT DATE: 201710
